FAERS Safety Report 7627284-0 (Version None)
Quarter: 2011Q3

REPORT INFORMATION
  Report Type: 
  Country: None (occurrence: None)
  Receive Date: 20110721
  Receipt Date: 20110719
  Transmission Date: 20111222
  Serious: Yes (Death, Life-Threatening, Hospitalization)
  Sender: FDA-Public Use
  Company Number: PHHO2011FR11646

PATIENT
  Sex: Female

DRUGS (7)
  1. VINCRISTINE [Suspect]
     Indication: ACUTE LYMPHOCYTIC LEUKAEMIA
     Dosage: 2 MG, DAILY
     Dates: start: 20110628
  2. OMEPRAZOLE [Concomitant]
  3. ATARAX [Concomitant]
  4. GLEEVEC [Suspect]
     Indication: ACUTE LYMPHOCYTIC LEUKAEMIA
     Dosage: 400 MG, UNK
     Route: 048
     Dates: start: 20110107
  5. DOXORUBICIN HCL [Suspect]
     Indication: ACUTE LYMPHOCYTIC LEUKAEMIA
     Dosage: 36 MG, DAILY
     Dates: start: 20110628
  6. BACTRIM [Concomitant]
  7. TRANXENE [Concomitant]

REACTIONS (1)
  - ESCHERICHIA SEPSIS [None]
